FAERS Safety Report 7899072-1 (Version None)
Quarter: 2011Q4

REPORT INFORMATION
  Report Type: 
  Country: None (occurrence: None)
  Receive Date: 20111107
  Receipt Date: 20111102
  Transmission Date: 20120403
  Serious: Yes (Disabling, Other)
  Sender: FDA-Public Use
  Company Number: US-MERCK-1110USA01235

PATIENT
  Age: 14 Year
  Sex: Male

DRUGS (7)
  1. SINGULAIR [Suspect]
     Route: 048
     Dates: end: 20090901
  2. NASONEX [Concomitant]
     Route: 055
  3. FLOVENT [Concomitant]
     Route: 065
  4. SINGULAIR [Suspect]
     Indication: ASTHMA
     Route: 048
     Dates: start: 20090901, end: 20110927
  5. SINGULAIR [Suspect]
     Indication: HYPERSENSITIVITY
     Route: 048
     Dates: start: 20090901, end: 20110927
  6. SINGULAIR [Suspect]
     Route: 048
     Dates: end: 20090901
  7. CLARITIN [Concomitant]
     Route: 065

REACTIONS (3)
  - DEPRESSED MOOD [None]
  - OVERDOSE [None]
  - SUICIDAL IDEATION [None]
